FAERS Safety Report 25917477 (Version 1)
Quarter: 2025Q4

REPORT INFORMATION
  Report Type: Spontaneous
  Country: US (occurrence: US)
  Receive Date: 20251014
  Receipt Date: 20251014
  Transmission Date: 20260117
  Serious: No
  Sender: ORPHALAN
  Company Number: US-ORPHALAN-US-ORP-24-00171

PATIENT
  Sex: Female
  Weight: 66.8 kg

DRUGS (2)
  1. CUVRIOR [Suspect]
     Active Substance: TRIENTINE TETRAHYDROCHLORIDE
     Indication: Hepato-lenticular degeneration
     Dosage: 600 MILLIGRAM, BID
     Route: 048
     Dates: start: 20240924
  2. ZINC [Concomitant]
     Active Substance: ZINC
     Indication: Product used for unknown indication

REACTIONS (2)
  - Headache [Not Recovered/Not Resolved]
  - Nausea [Not Recovered/Not Resolved]
